FAERS Safety Report 8368043-3 (Version None)
Quarter: 2012Q2

REPORT INFORMATION
  Report Type: 
  Country: None (occurrence: None)
  Receive Date: 20120516
  Receipt Date: 20120430
  Transmission Date: 20120825
  Serious: Yes (Hospitalization, Other)
  Sender: FDA-Public Use
  Company Number: CIP11000749

PATIENT
  Age: 66 Year
  Sex: Female

DRUGS (27)
  1. ACTONEL [Suspect]
     Dosage: 150 MG ONCE MONTHLY, ORAL
     Route: 048
     Dates: start: 20090819
  2. CLONAZEPAM [Concomitant]
  3. MIRAPEX [Concomitant]
  4. POTASSIUM CHLORIDE [Concomitant]
  5. FOSAMAX [Suspect]
     Indication: OSTEOPOROSIS
     Dosage: 70 MG ONCE WEEKLY, ORAL
     Route: 048
     Dates: start: 20021018, end: 20100101
  6. BACLOFEN [Concomitant]
  7. CHLROHEXIDINE GLUCONATE (CHLORHEXIDINE GLUCONATE) [Concomitant]
  8. CLINDAMYCIN [Concomitant]
  9. NASONEX [Concomitant]
  10. ACTONEL [Suspect]
     Dosage: 35 MG, ORAL
     Route: 048
  11. ARTHROTE (DICLOFENAC SODIUM, MISOPROSTOL) [Concomitant]
  12. LEVOTHYROXINE SODIUM [Concomitant]
  13. SINGULAIR [Concomitant]
  14. DARVOCET-N (DEXTROPROPOXYPHENE NAPSILATE, PARACETAMOL) [Concomitant]
  15. ARTANE [Concomitant]
  16. DETROL LA [Concomitant]
  17. CARBIDOPA-LEVODOPA-B (CARBIDOPA, LEVODOPA) [Concomitant]
  18. CEFADROXIL [Concomitant]
  19. FISH OIL (FISH OIL) [Concomitant]
  20. FLONASE [Concomitant]
  21. VYTORIN [Concomitant]
  22. FEXOFENADINE HCL [Concomitant]
  23. ALPRAZOLAM [Concomitant]
  24. CALCIUM CARBONATE [Concomitant]
  25. ACTONEL [Suspect]
     Dosage: 5 MG, ORAL
     Route: 048
  26. FLUTICASONE PROPIONATE [Concomitant]
  27. ULTRAM [Concomitant]

REACTIONS (9)
  - OSTEOMYELITIS [None]
  - OSTEONECROSIS OF JAW [None]
  - PAIN IN JAW [None]
  - EXPOSED BONE IN JAW [None]
  - OSTEOSCLEROSIS [None]
  - TEMPOROMANDIBULAR JOINT SYNDROME [None]
  - BONE LOSS [None]
  - PROCEDURAL PAIN [None]
  - PRIMARY SEQUESTRUM [None]
